FAERS Safety Report 15588366 (Version 6)
Quarter: 2019Q2

REPORT INFORMATION
  Report Type: Spontaneous
  Country: US (occurrence: US)
  Receive Date: 20181105
  Receipt Date: 20190401
  Transmission Date: 20190711
  Serious: Yes (Other)
  Sender: FDA-Public Use
  Company Number: PHEH2018US046962

PATIENT
  Sex: Female
  Weight: 96.61 kg

DRUGS (3)
  1. ONDANSETRON AUROBINDO [Suspect]
     Active Substance: ONDANSETRON HYDROCHLORIDE
     Indication: MORNING SICKNESS
     Dosage: 8 MG, Q8H
     Route: 048
     Dates: start: 20120322, end: 20120416
  2. ZOFRAN [Suspect]
     Active Substance: ONDANSETRON HYDROCHLORIDE
     Indication: MORNING SICKNESS
     Dosage: 2 MG/ML, UNK
     Route: 042
     Dates: start: 20121101, end: 20121101
  3. ZOFRAN [Suspect]
     Active Substance: ONDANSETRON HYDROCHLORIDE
     Indication: PRODUCT USED FOR UNKNOWN INDICATION
     Dosage: 04 MG, Q8H
     Route: 048

REACTIONS (11)
  - Maternal exposure during pregnancy [Unknown]
  - Leukocytosis [Unknown]
  - Staphylococcal infection [Unknown]
  - Product use in unapproved indication [Unknown]
  - Abscess limb [Unknown]
  - Cellulitis [Unknown]
  - Anxiety [Unknown]
  - Normocytic anaemia [Unknown]
  - Emotional distress [Unknown]
  - Injury [Unknown]
  - Muscle spasms [Unknown]
